FAERS Safety Report 24857524 (Version 2)
Quarter: 2025Q1

REPORT INFORMATION
  Report Type: Spontaneous
  Country: US (occurrence: US)
  Receive Date: 20250117
  Receipt Date: 20250123
  Transmission Date: 20250409
  Serious: No
  Sender: PFIZER
  Company Number: US-PFIZER INC-202500008928

PATIENT
  Age: 75 Year
  Sex: Female

DRUGS (1)
  1. RETACRIT [Suspect]
     Active Substance: EPOETIN ALFA-EPBX
     Indication: Renal disorder

REACTIONS (3)
  - Rhinorrhoea [Unknown]
  - Drug hypersensitivity [Unknown]
  - Off label use [Unknown]
